FAERS Safety Report 9453442 (Version 6)
Quarter: 2014Q1

REPORT INFORMATION
  Report Type: Report from Study
  Country: US (occurrence: US)
  Receive Date: 20130812
  Receipt Date: 20140319
  Transmission Date: 20141002
  Serious: Yes (Other)
  Sender: FDA-Public Use
  Company Number: US-JNJFOC-20130802321

PATIENT
  Age: 26 Year
  Sex: Female
  Weight: 87.54 kg

DRUGS (13)
  1. REMICADE [Suspect]
     Indication: CROHN^S DISEASE
     Dosage: 440 MG IN NACL 0.9 % 250 ML IVPB
     Route: 042
     Dates: start: 20130801, end: 20130801
  2. REMICADE [Suspect]
     Indication: CROHN^S DISEASE
     Dosage: INFUSE AT WEEK 6 AND THEN EVERY 8 WEEKS
     Route: 042
     Dates: start: 20130621
  3. REMICADE [Suspect]
     Indication: CROHN^S DISEASE
     Route: 042
     Dates: start: 20130615
  4. OXYCODONE [Concomitant]
     Indication: PAIN
     Route: 048
     Dates: start: 201307
  5. WARFARIN [Concomitant]
     Route: 065
     Dates: start: 201307
  6. PREDNISONE [Concomitant]
     Indication: CROHN^S DISEASE
     Route: 065
     Dates: start: 201307
  7. AMBIEN [Concomitant]
     Indication: SLEEP DISORDER
     Route: 048
     Dates: start: 201307
  8. DICYCLOMINE [Concomitant]
     Indication: CROHN^S DISEASE
     Route: 048
     Dates: start: 201307
  9. ERGOCALCIFEROL [Concomitant]
     Dosage: 50,000 UNIT
     Route: 048
  10. DEPO-MEDROL [Concomitant]
     Route: 030
  11. THERAGRAN [Concomitant]
     Route: 048
  12. TYLENOL [Concomitant]
     Indication: PREMEDICATION
     Route: 048
  13. BENADRYL [Concomitant]
     Indication: PREMEDICATION
     Route: 048

REACTIONS (4)
  - Infusion related reaction [Recovered/Resolved]
  - Drug hypersensitivity [Recovered/Resolved]
  - Drug intolerance [Unknown]
  - Crohn^s disease [Unknown]
